FAERS Safety Report 10222115 (Version 1)
Quarter: 2014Q2

REPORT INFORMATION
  Report Type: Spontaneous
  Country: US (occurrence: None)
  Receive Date: 20140606
  Receipt Date: 20140606
  Transmission Date: 20141212
  Serious: No
  Sender: FDA-Public Use
  Company Number: None

PATIENT
  Age: 28 Year
  Sex: Female
  Weight: 67.13 kg

DRUGS (1)
  1. TOPAMAX [Suspect]
     Indication: WEIGHT CONTROL
     Dosage: 1 PILL, TWICE DAILY, TAKEN BY MOUTH
     Route: 048

REACTIONS (5)
  - Vision blurred [None]
  - Eyelid oedema [None]
  - Flat anterior chamber of eye [None]
  - Intraocular pressure increased [None]
  - Visual acuity reduced [None]
